FAERS Safety Report 22058415 (Version 3)
Quarter: 2023Q1

REPORT INFORMATION
  Report Type: Spontaneous
  Country: IT (occurrence: IT)
  Receive Date: 20230303
  Receipt Date: 20230317
  Transmission Date: 20230418
  Serious: Yes (Other)
  Sender: FDA-Public Use
  Company Number: None

PATIENT
  Age: 20 Year
  Sex: Female
  Weight: 58 kg

DRUGS (2)
  1. RIASTAP [Suspect]
     Active Substance: FIBRINOGEN HUMAN
     Indication: Factor I deficiency
     Dosage: 1 GRAM
     Route: 042
     Dates: start: 20230104, end: 20230104
  2. RIASTAP [Suspect]
     Active Substance: FIBRINOGEN HUMAN
     Dosage: 1 GRAM
     Route: 042
     Dates: start: 20230126, end: 20230126

REACTIONS (4)
  - Anaphylactic shock [Not Recovered/Not Resolved]
  - Dyspnoea [Not Recovered/Not Resolved]
  - Heart rate increased [Not Recovered/Not Resolved]
  - Burning sensation [Not Recovered/Not Resolved]

NARRATIVE: CASE EVENT DATE: 20230104
